FAERS Safety Report 11408821 (Version 4)
Quarter: 2016Q3

REPORT INFORMATION
  Report Type: Spontaneous
  Country: US (occurrence: US)
  Receive Date: 20150823
  Receipt Date: 20160829
  Transmission Date: 20161109
  Serious: No
  Sender: FDA-Public Use
  Company Number: US-GLAXOSMITHKLINE-US2015120031

PATIENT
  Age: 69 Year
  Sex: Male

DRUGS (20)
  1. ADVAIR DISKUS [Suspect]
     Active Substance: FLUTICASONE PROPIONATE\SALMETEROL XINAFOATE
     Indication: CHRONIC OBSTRUCTIVE PULMONARY DISEASE
     Dosage: 1 PUFF(S), BID
     Route: 055
  2. OXYCODONE + APAP [Concomitant]
  3. ACYCLOVIR. [Concomitant]
     Active Substance: ACYCLOVIR
  4. VITAMIN D3 [Concomitant]
     Active Substance: CHOLECALCIFEROL
  5. ADVAIR DISKUS [Suspect]
     Active Substance: FLUTICASONE PROPIONATE\SALMETEROL XINAFOATE
     Dosage: 1 PUFF(S), BID
  6. ASPIRIN (BABY) [Concomitant]
     Active Substance: ASPIRIN
  7. HYDROCODONE [Concomitant]
     Active Substance: HYDROCODONE
  8. TIKOSYN [Concomitant]
     Active Substance: DOFETILIDE
  9. ALBUTEROL SULFATE NEBULISER SOLUTION [Concomitant]
     Active Substance: ALBUTEROL SULFATE
  10. COENZYME Q10 [Concomitant]
     Active Substance: UBIDECARENONE
  11. ALPRAZOLAM. [Concomitant]
     Active Substance: ALPRAZOLAM
  12. KETOCONAZOLE TOPICAL [Concomitant]
  13. LISINOPRIL. [Concomitant]
     Active Substance: LISINOPRIL
  14. METOPROLOL. [Concomitant]
     Active Substance: METOPROLOL
  15. WARFARIN [Concomitant]
     Active Substance: WARFARIN
  16. ALBUTEROL. [Concomitant]
     Active Substance: ALBUTEROL
  17. VITAMIN B12 [Concomitant]
     Active Substance: CYANOCOBALAMIN
  18. AMLODIPINE [Concomitant]
     Active Substance: AMLODIPINE BESYLATE
  19. MUPIROCIN TOPICAL [Concomitant]
  20. OXYCODONE [Concomitant]
     Active Substance: OXYCODONE

REACTIONS (6)
  - Dyspnoea [Not Recovered/Not Resolved]
  - Product quality issue [Unknown]
  - Memory impairment [Not Recovered/Not Resolved]
  - Confusional state [Not Recovered/Not Resolved]
  - Influenza [Recovered/Resolved]
  - Intentional product use issue [Unknown]

NARRATIVE: CASE EVENT DATE: 201608
